FAERS Safety Report 15709516 (Version 3)
Quarter: 2019Q2

REPORT INFORMATION
  Report Type: Spontaneous
  Country: US (occurrence: US)
  Receive Date: 20181211
  Receipt Date: 20190621
  Transmission Date: 20190711
  Serious: Yes (Other)
  Sender: FDA-Public Use
  Company Number: US-PFIZER INC-2018504005

PATIENT
  Age: 59 Year
  Sex: Female
  Weight: 127 kg

DRUGS (11)
  1. MELATONIN [Concomitant]
     Active Substance: MELATONIN
     Dosage: 3 MG, 1X/DAY (3 MG NIGHTLY)
  2. GENOTROPIN [Suspect]
     Active Substance: SOMATROPIN
     Dosage: UNK (5 INJECTIONS A DAY)
     Dates: start: 201801, end: 201901
  3. LORATADINE. [Concomitant]
     Active Substance: LORATADINE
     Indication: HYPERSENSITIVITY
     Dosage: 10 MG, 1X/DAY
  4. CLONAZEPAM. [Concomitant]
     Active Substance: CLONAZEPAM
     Dosage: 1 MG, 3X/DAY
  5. CANNABIDIOL [Concomitant]
     Active Substance: CANNABIDIOL
     Dosage: 50 MG, 3X/DAY
  6. GENOTROPIN [Suspect]
     Active Substance: SOMATROPIN
     Indication: GROWTH HORMONE DEFICIENCY
     Dosage: UNK, 1X/DAY [DIALS 6 ON THE PEN, AND SHE IS UNSURE OF UNITS]
     Route: 058
     Dates: start: 201802
  7. IBUPROFEN. [Concomitant]
     Active Substance: IBUPROFEN
     Dosage: UNK
  8. GENOTROPIN [Suspect]
     Active Substance: SOMATROPIN
     Dosage: 0.4 MG, UNK [SHE IS UNSURE OF THE DOSAGE UNITS, BUT SHE THINKS THE UNITS ARE MG]
  9. ULTRAM [Concomitant]
     Active Substance: TRAMADOL HYDROCHLORIDE
     Dosage: 50 MG, 4X/DAY
  10. VITAMIN D3 [Concomitant]
     Active Substance: CHOLECALCIFEROL
     Dosage: UNK UNK, WEEKLY (30,000 PER WEEK)
  11. VITAMIN B12 [Concomitant]
     Active Substance: CYANOCOBALAMIN
     Dosage: UNK UNK, 3X/DAY (1 TAB 3 TIMES DAILY) MAR2018

REACTIONS (10)
  - Pain [Recovering/Resolving]
  - Feeling abnormal [Recovering/Resolving]
  - Carpal tunnel syndrome [Recovered/Resolved]
  - Hypothalamo-pituitary disorder [Recovered/Resolved]
  - Multiple allergies [Recovering/Resolving]
  - Visual impairment [Not Recovered/Not Resolved]
  - Poor quality sleep [Recovering/Resolving]
  - Pyrexia [Recovering/Resolving]
  - Condition aggravated [Recovered/Resolved]
  - Asthenia [Recovering/Resolving]

NARRATIVE: CASE EVENT DATE: 2018
